FAERS Safety Report 6291509-7 (Version None)
Quarter: 2009Q3

REPORT INFORMATION
  Report Type: 
  Country: None (occurrence: None)
  Receive Date: 20090730
  Receipt Date: 20090720
  Transmission Date: 20100115
  Serious: Yes (Other)
  Sender: FDA-Public Use
  Company Number: FI-SANOFI-SYNTHELABO-F01200900710

PATIENT
  Sex: Female

DRUGS (2)
  1. CAPECITABINE [Suspect]
     Indication: RECTAL CANCER
     Dosage: UNK
     Route: 048
     Dates: start: 20081128
  2. OXALIPLATIN [Suspect]
     Indication: RECTAL CANCER
     Dosage: UNK
     Route: 042
     Dates: start: 20081128

REACTIONS (2)
  - ARTERIOSPASM CORONARY [None]
  - NEUROPATHY PERIPHERAL [None]
